FAERS Safety Report 17789053 (Version 1)
Quarter: 2020Q2

REPORT INFORMATION
  Report Type: Spontaneous
  Country: US (occurrence: US)
  Receive Date: 20200515
  Receipt Date: 20200515
  Transmission Date: 20200714
  Serious: Yes (Other)
  Sender: FDA-Public Use
  Company Number: US-SA-2020SA123748

PATIENT
  Age: 77 Year
  Sex: Female

DRUGS (1)
  1. APIDRA SOLOSTAR [Suspect]
     Active Substance: INSULIN GLULISINE
     Indication: TYPE 2 DIABETES MELLITUS
     Dosage: SLIDING SCALE, TWICE DAILY
     Route: 065

REACTIONS (18)
  - Cataract [Unknown]
  - Liver disorder [Unknown]
  - Diarrhoea [Unknown]
  - Somnolence [Unknown]
  - Diabetes mellitus inadequate control [Unknown]
  - Autoimmune disorder [Unknown]
  - Meniscus injury [Unknown]
  - Nasopharyngitis [Unknown]
  - Weight increased [Unknown]
  - Product storage error [Unknown]
  - Visual impairment [Unknown]
  - Dizziness [Unknown]
  - Blood glucose increased [Unknown]
  - Urinary tract infection bacterial [Unknown]
  - Feeling abnormal [Unknown]
  - Tremor [Unknown]
  - Rosacea [Unknown]
  - Eye operation [Unknown]
